FAERS Safety Report 18472111 (Version 1)
Quarter: 2020Q4

REPORT INFORMATION
  Report Type: Spontaneous
  Country: US (occurrence: US)
  Receive Date: 20201106
  Receipt Date: 20201106
  Transmission Date: 20210114
  Serious: No
  Sender: FDA-Public Use
  Company Number: US-GLAXOSMITHKLINE-US2020198283

PATIENT

DRUGS (1)
  1. EXCEDRIN MIGRAINE [Suspect]
     Active Substance: ACETAMINOPHEN\ASPIRIN\CAFFEINE
     Indication: MIGRAINE
     Dosage: TAKE 4-5 PILLS AT A TIME THOUGH

REACTIONS (5)
  - Gastrointestinal disorder [Unknown]
  - Toxicity to various agents [Unknown]
  - Therapeutic product effect incomplete [Unknown]
  - Illness [Unknown]
  - Overdose [Unknown]
